FAERS Safety Report 25634861 (Version 1)
Quarter: 2025Q3

REPORT INFORMATION
  Report Type: Spontaneous
  Country: CA (occurrence: CA)
  Receive Date: 20250801
  Receipt Date: 20250801
  Transmission Date: 20251020
  Serious: Yes (Other)
  Sender: TEVA
  Company Number: CA-TEVA-VS-3357039

PATIENT
  Age: 65 Year
  Sex: Female
  Weight: 59 kg

DRUGS (7)
  1. PREDNISONE [Suspect]
     Active Substance: PREDNISONE
     Indication: Product used for unknown indication
     Route: 065
  2. INFLIXIMAB [Suspect]
     Active Substance: INFLIXIMAB
     Indication: Crohn^s disease
     Route: 042
     Dates: start: 20250423
  3. INFLIXIMAB [Suspect]
     Active Substance: INFLIXIMAB
     Indication: Crohn^s disease
     Route: 042
     Dates: start: 20250516, end: 20250516
  4. INFLIXIMAB [Suspect]
     Active Substance: INFLIXIMAB
     Indication: Crohn^s disease
     Route: 042
     Dates: start: 20250612
  5. AERIUS(DESLORATIDINE) [Concomitant]
     Indication: Product used for unknown indication
     Route: 048
     Dates: start: 20250612, end: 20250612
  6. BENADRYL(DIPHENYRAMINE HYDROCHLORIDE) [Concomitant]
     Indication: Product used for unknown indication
     Route: 065
     Dates: start: 20250612, end: 20250612
  7. IMURAN(AZATHIOPRINE) [Concomitant]
     Indication: Product used for unknown indication
     Route: 065

REACTIONS (7)
  - Crohn^s disease [Unknown]
  - Hypoaesthesia [Unknown]
  - Face oedema [Unknown]
  - Skin plaque [Recovered/Resolved]
  - Weight increased [Unknown]
  - Swelling face [Unknown]
  - Constipation [Unknown]

NARRATIVE: CASE EVENT DATE: 20250101
